FAERS Safety Report 5295757-4 (Version None)
Quarter: 2007Q2

REPORT INFORMATION
  Report Type: 
  Country: None (occurrence: None)
  Receive Date: 20070406
  Receipt Date: 20070319
  Transmission Date: 20071010
  Serious: Yes (Life-Threatening, Hospitalization)
  Sender: FDA-Public Use
  Company Number: 2006VX001345

PATIENT
  Age: 15 Year
  Sex: Female

DRUGS (4)
  1. MESTINON [Suspect]
     Indication: MYASTHENIA GRAVIS
     Dosage: 90 MG; QID; PO
     Route: 048
     Dates: start: 20050920, end: 20051031
  2. PREDNISOLONE [Suspect]
     Dosage: QD
     Dates: start: 20050901, end: 20051031
  3. MINOCIN [Suspect]
     Dates: end: 20051031
  4. OMEPRAZOLE [Suspect]
     Dates: start: 20051001, end: 20051027

REACTIONS (3)
  - ACNE [None]
  - GASTROINTESTINAL DISORDER [None]
  - TOXIC EPIDERMAL NECROLYSIS [None]
